FAERS Safety Report 4544636-6 (Version None)
Quarter: 2004Q4

REPORT INFORMATION
  Report Type: 
  Country: None (occurrence: None)
  Receive Date: 20041230
  Receipt Date: 20041220
  Transmission Date: 20050328
  Serious: Yes (Other)
  Sender: FDA-Public Use
  Company Number: 2004098386

PATIENT
  Age: 70 Year
  Sex: Male
  Weight: 79.3795 kg

DRUGS (6)
  1. LIPITOR [Suspect]
     Indication: CEREBROVASCULAR ACCIDENT
     Dosage: 20 MG (1 IN 1 D), ORAL
     Route: 048
     Dates: start: 20030401
  2. LIPITOR [Suspect]
     Indication: HYPERLIPIDAEMIA
     Dosage: 20 MG (1 IN 1 D), ORAL
     Route: 048
     Dates: start: 20030401
  3. LISINOPRIL [Concomitant]
  4. ERGOCALCIFEROL (ERGOCALCIFEROL) [Concomitant]
  5. SERENOA REPENS (SERENOA REPENS) [Concomitant]
  6. MULTIVITAMINS (ASCORBIC ACID, ERGOCALCIFEROL, FOLIC ACID, NICOTINAMIDE [Concomitant]

REACTIONS (2)
  - BLADDER CANCER [None]
  - CEREBROVASCULAR ACCIDENT [None]
